FAERS Safety Report 9565428 (Version 1)
Quarter: 2013Q3

REPORT INFORMATION
  Report Type: Spontaneous
  Country: GB (occurrence: GB)
  Receive Date: 20130930
  Receipt Date: 20130930
  Transmission Date: 20140515
  Serious: Yes (Other)
  Sender: FDA-Public Use
  Company Number: GB-MERCK-1309GBR011959

PATIENT
  Age: 57 Year
  Sex: Male

DRUGS (3)
  1. PEGINTERFERON ALFA-2B [Suspect]
     Dosage: UNK
     Route: 058
     Dates: start: 20121114
  2. RIBAVIRIN [Suspect]
     Indication: HEPATITIS C
     Dosage: 2 IN 1 DAY, BID
     Route: 048
     Dates: start: 20121114
  3. TELAPREVIR [Suspect]
     Indication: HEPATITIS C
     Dosage: 750 MG, TID
     Route: 048
     Dates: start: 20121114

REACTIONS (10)
  - Anaemia [Recovering/Resolving]
  - Rash [Not Recovered/Not Resolved]
  - Mouth ulceration [Not Recovered/Not Resolved]
  - Anal pruritus [Not Recovered/Not Resolved]
  - Proctalgia [Unknown]
  - Proctalgia [Unknown]
  - Urinary tract infection [Unknown]
  - Influenza like illness [Not Recovered/Not Resolved]
  - Fatigue [Not Recovered/Not Resolved]
  - Myalgia [Not Recovered/Not Resolved]
